FAERS Safety Report 5387792-2 (Version None)
Quarter: 2007Q3

REPORT INFORMATION
  Report Type: 
  Country: None (occurrence: None)
  Receive Date: 20070712
  Receipt Date: 20070712
  Transmission Date: 20080115
  Serious: Yes (Disabling, Other)
  Sender: FDA-Public Use
  Company Number: None

PATIENT
  Age: 77 Year
  Sex: Female
  Weight: 67.1324 kg

DRUGS (1)
  1. BONIVA [Suspect]
     Indication: OSTEOPOROSIS
     Dosage: IV
     Route: 042
     Dates: start: 20070702, end: 20070702

REACTIONS (8)
  - DRY EYE [None]
  - DYSPNOEA [None]
  - EYE INFLAMMATION [None]
  - EYE IRRITATION [None]
  - IMPAIRED DRIVING ABILITY [None]
  - MUSCLE FATIGUE [None]
  - PAIN IN EXTREMITY [None]
  - PHOTOPHOBIA [None]
